FAERS Safety Report 13564367 (Version 1)
Quarter: 2017Q2

REPORT INFORMATION
  Report Type: Spontaneous
  Country: US (occurrence: US)
  Receive Date: 20170519
  Receipt Date: 20170519
  Transmission Date: 20170830
  Serious: No
  Sender: FDA-Public Use
  Company Number: US-PFIZER INC-2017214830

PATIENT
  Sex: Male

DRUGS (1)
  1. DETROL LA [Suspect]
     Active Substance: TOLTERODINE TARTRATE
     Indication: PROSTATITIS
     Dosage: UNK

REACTIONS (2)
  - Haematospermia [Unknown]
  - Product use in unapproved indication [Unknown]
